FAERS Safety Report 10170039 (Version 1)
Quarter: 2014Q2

REPORT INFORMATION
  Report Type: Spontaneous
  Country: US (occurrence: US)
  Receive Date: 20140513
  Receipt Date: 20140513
  Transmission Date: 20141212
  Serious: Yes (Other)
  Sender: FDA-Public Use
  Company Number: US-PFIZER INC-2014126744

PATIENT
  Age: 48 Year
  Sex: Female

DRUGS (13)
  1. VORICONAZOLE [Suspect]
     Indication: OESOPHAGEAL CANDIDIASIS
     Dosage: 200 MG EVERY 12 HOURS
     Route: 048
  2. VORICONAZOLE [Interacting]
     Dosage: 200 MG EVERY 12 HOURS
     Route: 048
  3. BUDESONIDE [Interacting]
     Indication: CROHN^S DISEASE
     Dosage: 9 MG, DAILY
     Route: 048
  4. ADALIMUMAB [Concomitant]
     Indication: CROHN^S DISEASE
     Dosage: UNK
  5. FAMOTIDINE [Concomitant]
     Dosage: UNK
  6. MIRTAZAPINE [Concomitant]
     Dosage: UNK
  7. HYDROCODONE W/ACETAMINOPHEN [Concomitant]
     Dosage: UNK
  8. LOSARTAN [Concomitant]
     Dosage: UNK
  9. CALCIUM CARBONATE [Concomitant]
     Dosage: UNK
  10. SODIUM CITRATE [Concomitant]
     Dosage: UNK
  11. CITRIC ACID [Concomitant]
     Dosage: UNK
  12. FLUCONAZOLE [Concomitant]
     Indication: OESOPHAGEAL CANDIDIASIS
     Dosage: 200 MG, DAILY
     Route: 048
  13. NYSTATIN [Concomitant]
     Indication: OESOPHAGEAL CANDIDIASIS
     Dosage: 500,000 UNITS/5 ML SOLUTION AS NEEDED
     Route: 048

REACTIONS (2)
  - Cushing^s syndrome [Recovering/Resolving]
  - Drug interaction [Recovering/Resolving]
